FAERS Safety Report 10426276 (Version 1)
Quarter: 2014Q3

REPORT INFORMATION
  Report Type: Spontaneous
  Country: US (occurrence: None)
  Receive Date: 20140725
  Receipt Date: 20140725
  Transmission Date: 20150326
  Serious: No
  Sender: FDA-Public Use
  Company Number: AP356-00963-SPO-US

PATIENT
  Age: 51 Year
  Sex: Female
  Weight: 101.6 kg

DRUGS (4)
  1. PROZAC (FLUOXETINE) [Concomitant]
  2. BELVIQ [Suspect]
     Active Substance: LORCASERIN HYDROCHLORIDE
     Indication: WEIGHT DECREASED
     Route: 048
     Dates: start: 201405, end: 201405
  3. KLONOPIN (CLONAZEPAM) [Concomitant]
  4. LAMOTRIGINE. [Concomitant]
     Active Substance: LAMOTRIGINE

REACTIONS (2)
  - Cough [None]
  - Influenza like illness [None]

NARRATIVE: CASE EVENT DATE: 20140530
